FAERS Safety Report 4716343-8 (Version None)
Quarter: 2005Q3

REPORT INFORMATION
  Report Type: 
  Country: None (occurrence: None)
  Receive Date: 20050711
  Receipt Date: 20050406
  Transmission Date: 20060218
  Serious: Yes (Other)
  Sender: FDA-Public Use
  Company Number: ENTC2005-0101

PATIENT
  Age: 74 Year
  Sex: Female

DRUGS (2)
  1. STALEVO 100 [Suspect]
     Indication: PARKINSON'S DISEASE
     Dosage: QID, ORAL
     Route: 048
     Dates: start: 20050203, end: 20050217
  2. LEVODOPA-CARBIDOPA(TABLET) [Suspect]
     Indication: PARKINSON'S DISEASE
     Dosage: 100/25 1.5 TABLETS QID, ORAL
     Route: 048

REACTIONS (4)
  - CONFUSIONAL STATE [None]
  - GAIT DISTURBANCE [None]
  - SOMNOLENCE [None]
  - THINKING ABNORMAL [None]
